FAERS Safety Report 18557989 (Version 4)
Quarter: 2023Q4

REPORT INFORMATION
  Report Type: Spontaneous
  Country: FR (occurrence: FR)
  Receive Date: 20201130
  Receipt Date: 20231112
  Transmission Date: 20240109
  Serious: Yes (Hospitalization)
  Sender: FDA-Public Use
  Company Number: FR-BRISTOL-MYERS SQUIBB COMPANY-BMS-2020-099300

PATIENT
  Age: 69 Year
  Sex: Male
  Weight: 75 kg

DRUGS (34)
  1. NIVOLUMAB [Suspect]
     Active Substance: NIVOLUMAB
     Indication: Renal cell carcinoma
     Dates: start: 20190227, end: 20200819
  2. NIVOLUMAB [Suspect]
     Active Substance: NIVOLUMAB
     Dates: start: 20190227, end: 20190227
  3. NIVOLUMAB [Suspect]
     Active Substance: NIVOLUMAB
     Dates: start: 20190326, end: 20190326
  4. NIVOLUMAB [Suspect]
     Active Substance: NIVOLUMAB
     Dates: start: 20190507, end: 20190507
  5. NIVOLUMAB [Suspect]
     Active Substance: NIVOLUMAB
     Dates: start: 20190623, end: 20190623
  6. NIVOLUMAB [Suspect]
     Active Substance: NIVOLUMAB
     Dates: start: 20190722, end: 20190722
  7. NIVOLUMAB [Suspect]
     Active Substance: NIVOLUMAB
     Dates: start: 20190816, end: 20190816
  8. NIVOLUMAB [Suspect]
     Active Substance: NIVOLUMAB
     Dates: start: 20190906, end: 20190906
  9. NIVOLUMAB [Suspect]
     Active Substance: NIVOLUMAB
     Dates: start: 20190927, end: 20190927
  10. NIVOLUMAB [Suspect]
     Active Substance: NIVOLUMAB
     Dates: start: 20191018, end: 20191018
  11. NIVOLUMAB [Suspect]
     Active Substance: NIVOLUMAB
     Dates: start: 20191108, end: 20191108
  12. NIVOLUMAB [Suspect]
     Active Substance: NIVOLUMAB
     Dates: start: 20191206, end: 20191206
  13. NIVOLUMAB [Suspect]
     Active Substance: NIVOLUMAB
     Dates: start: 20200103, end: 20200103
  14. NIVOLUMAB [Suspect]
     Active Substance: NIVOLUMAB
     Dates: start: 20200131, end: 20200131
  15. NIVOLUMAB [Suspect]
     Active Substance: NIVOLUMAB
     Dates: start: 20200227, end: 20200227
  16. NIVOLUMAB [Suspect]
     Active Substance: NIVOLUMAB
     Dates: start: 20200326, end: 20200326
  17. NIVOLUMAB [Suspect]
     Active Substance: NIVOLUMAB
     Dates: start: 20200507, end: 20200507
  18. NIVOLUMAB [Suspect]
     Active Substance: NIVOLUMAB
     Dates: start: 20200623, end: 20200623
  19. NIVOLUMAB [Suspect]
     Active Substance: NIVOLUMAB
     Dates: start: 20200722, end: 20200722
  20. NIVOLUMAB [Suspect]
     Active Substance: NIVOLUMAB
     Dates: start: 20200819, end: 20200819
  21. IPILIMUMAB [Suspect]
     Active Substance: IPILIMUMAB
     Indication: Renal cell carcinoma
     Dates: start: 20190816, end: 20191018
  22. CABOMETYX [Suspect]
     Active Substance: CABOZANTINIB S-MALATE
     Indication: Renal cancer metastatic
     Route: 048
     Dates: start: 20200819, end: 20200902
  23. CABOMETYX [Suspect]
     Active Substance: CABOZANTINIB S-MALATE
     Indication: Hepatic cancer
     Route: 048
     Dates: start: 20200819
  24. CABOMETYX [Suspect]
     Active Substance: CABOZANTINIB S-MALATE
     Route: 048
     Dates: start: 20200902
  25. CABOMETYX [Suspect]
     Active Substance: CABOZANTINIB S-MALATE
     Route: 048
     Dates: start: 20201119
  26. DUPHALAC [Concomitant]
     Active Substance: LACTULOSE
     Indication: Product used for unknown indication
     Route: 048
     Dates: start: 20190927
  27. VENLAFAXINE [Concomitant]
     Active Substance: VENLAFAXINE HYDROCHLORIDE
     Indication: Depression
     Route: 048
  28. EZETIMIBE [Concomitant]
     Active Substance: EZETIMIBE
     Indication: Product used for unknown indication
     Route: 048
     Dates: start: 2018
  29. IRBESARTAN [Concomitant]
     Active Substance: IRBESARTAN
     Indication: Product used for unknown indication
     Route: 048
     Dates: start: 2018
  30. VOGALENE [Concomitant]
     Active Substance: METOPIMAZINE
     Indication: Product used for unknown indication
     Route: 054
     Dates: start: 20191108
  31. ONDANSETRON [Concomitant]
     Active Substance: ONDANSETRON
     Indication: Product used for unknown indication
     Dosage: 8 MG
     Route: 048
     Dates: start: 20190521
  32. RAMIPRIL [Concomitant]
     Active Substance: RAMIPRIL
     Indication: Hypertension
     Dosage: 2.5 MG, QD
     Route: 048
  33. RAMIPRIL [Concomitant]
     Active Substance: RAMIPRIL
     Indication: Hypertension
     Dosage: 2.5 MILLIGRAM, QD
     Route: 048
  34. ONDANSETRON [Concomitant]
     Active Substance: ONDANSETRON
     Indication: Product used for unknown indication
     Dosage: 12 MILLIGRAM
     Route: 048
     Dates: start: 20200623

REACTIONS (12)
  - Varicose ulceration [Not Recovered/Not Resolved]
  - Diarrhoea [Not Recovered/Not Resolved]
  - Dyspnoea [Not Recovered/Not Resolved]
  - Pruritus [Recovered/Resolved]
  - Fatigue [Not Recovered/Not Resolved]
  - Impetigo [Recovering/Resolving]
  - Dizziness [Not Recovered/Not Resolved]
  - Dyspepsia [Recovering/Resolving]
  - Asthenia [Recovering/Resolving]
  - Nausea [Recovering/Resolving]
  - Palmar-plantar erythrodysaesthesia syndrome [Recovering/Resolving]
  - Off label use [Unknown]

NARRATIVE: CASE EVENT DATE: 20200801
